FAERS Safety Report 10159898 (Version 1)
Quarter: 2014Q2

REPORT INFORMATION
  Report Type: Spontaneous
  Country: FR (occurrence: FR)
  Receive Date: 20140508
  Receipt Date: 20140508
  Transmission Date: 20141212
  Serious: Yes (Hospitalization)
  Sender: FDA-Public Use
  Company Number: PHHY2014FR055416

PATIENT
  Sex: Female

DRUGS (3)
  1. ESIDREX [Suspect]
     Indication: HYPERTENSION
     Dosage: UNK UKN, UNK
     Route: 048
     Dates: start: 201402, end: 20140327
  2. TERALITHE [Suspect]
     Indication: BIPOLAR DISORDER
     Dosage: 0.5 DF (400 MG), QD
     Route: 048
     Dates: end: 20140327
  3. TERALITHE [Suspect]
     Dosage: OVERDOSE REPORTED UNKNOWN
     Route: 048

REACTIONS (4)
  - Metabolic acidosis [Recovered/Resolved]
  - Confusional state [Recovered/Resolved]
  - Renal tubular disorder [Recovered/Resolved]
  - Overdose [Recovered/Resolved]
